FAERS Safety Report 6401118-4 (Version None)
Quarter: 2009Q4

REPORT INFORMATION
  Report Type: 
  Country: None (occurrence: None)
  Receive Date: 20091015
  Receipt Date: 20091009
  Transmission Date: 20100525
  Serious: No
  Sender: FDA-Public Use
  Company Number: US-JNJFOC-20091004116

PATIENT
  Sex: Female
  Weight: 45.36 kg

DRUGS (3)
  1. DURAGESIC-100 [Suspect]
     Indication: BACK PAIN
     Route: 062
  2. PERCODAN-DEMI [Concomitant]
     Indication: BREAKTHROUGH PAIN
     Dosage: 3 TIMES A DAY AS NEEDED
     Route: 048
  3. TOPROL-XL [Concomitant]
     Indication: BLOOD PRESSURE

REACTIONS (3)
  - DRUG INEFFECTIVE [None]
  - INAPPROPRIATE SCHEDULE OF DRUG ADMINISTRATION [None]
  - PRODUCT MEASURED POTENCY ISSUE [None]
